FAERS Safety Report 10068815 (Version 2)
Quarter: 2014Q2

REPORT INFORMATION
  Report Type: Spontaneous
  Country: DE (occurrence: DE)
  Receive Date: 20140409
  Receipt Date: 20140416
  Transmission Date: 20141212
  Serious: Yes (Other)
  Sender: FDA-Public Use
  Company Number: GXKR2014DE001509

PATIENT
  Age: 84 Year
  Sex: Male
  Weight: 78 kg

DRUGS (2)
  1. METFORMIN 1A PHARMA [Suspect]
     Indication: TYPE 1 DIABETES MELLITUS
     Dosage: 850 MG, QHS
     Route: 048
  2. PLATELET AGGREGATION INHIBITORS [Concomitant]

REACTIONS (3)
  - Urinary retention [Unknown]
  - Renal pain [Unknown]
  - Malaise [Unknown]
